FAERS Safety Report 6382315-3 (Version None)
Quarter: 2009Q3

REPORT INFORMATION
  Report Type: 
  Country: None (occurrence: None)
  Receive Date: 20090930
  Receipt Date: 20090922
  Transmission Date: 20100115
  Serious: Yes (Hospitalization)
  Sender: FDA-Public Use
  Company Number: IT-ALEXION-A200900778

PATIENT

DRUGS (3)
  1. SOLIRIS [Suspect]
     Dosage: 600 MG, QW
     Route: 042
     Dates: start: 20090305, end: 20090101
  2. SOLIRIS [Suspect]
     Dosage: 900 MG, Q2W
     Route: 042
     Dates: start: 20090101
  3. STEROIDS [Suspect]

REACTIONS (2)
  - CHOLECYSTITIS [None]
  - PYREXIA [None]
